FAERS Safety Report 11858246 (Version 2)
Quarter: 2016Q1

REPORT INFORMATION
  Report Type: Spontaneous
  Country: US (occurrence: US)
  Receive Date: 20151222
  Receipt Date: 20160201
  Transmission Date: 20160526
  Serious: No
  Sender: FDA-Public Use
  Company Number: US-GLAXOSMITHKLINE-US2015176335

PATIENT
  Age: 61 Year
  Sex: Male

DRUGS (3)
  1. VENTOLIN HFA [Suspect]
     Active Substance: ALBUTEROL SULFATE
     Indication: ASTHMA
     Dosage: UNK
     Route: 055
     Dates: start: 2006
  2. ALLOPURINOL. [Concomitant]
     Active Substance: ALLOPURINOL
     Dosage: UNK
  3. XARELTO [Concomitant]
     Active Substance: RIVAROXABAN
     Dosage: UNK

REACTIONS (6)
  - Dyspnoea [Unknown]
  - Drug dose omission [Unknown]
  - Medication error [Unknown]
  - Discomfort [Unknown]
  - Device use error [Unknown]
  - Product quality issue [Unknown]

NARRATIVE: CASE EVENT DATE: 201511
